FAERS Safety Report 9859390 (Version 1)
Quarter: 2014Q1

REPORT INFORMATION
  Report Type: Report from Study
  Country: DE (occurrence: DE)
  Receive Date: 20140131
  Receipt Date: 20140131
  Transmission Date: 20141002
  Serious: Yes (Other)
  Sender: FDA-Public Use
  Company Number: PHHY2014DE011608

PATIENT
  Sex: Female

DRUGS (1)
  1. FTY 720 [Suspect]
     Indication: MULTIPLE SCLEROSIS
     Dosage: 0.5 MG, UNK
     Route: 048
     Dates: start: 20120416, end: 20131206

REACTIONS (4)
  - Paraparesis [Recovered/Resolved]
  - Ataxia [Recovered/Resolved]
  - Bladder disorder [Recovered/Resolved]
  - Asthenia [Recovered/Resolved]
